FAERS Safety Report 24682107 (Version 2)
Quarter: 2024Q4

REPORT INFORMATION
  Report Type: Spontaneous
  Country: AT (occurrence: AT)
  Receive Date: 20241130
  Receipt Date: 20241230
  Transmission Date: 20250115
  Serious: Yes (Hospitalization, Other)
  Sender: ALEXION PHARMACEUTICALS
  Company Number: AT-SA-2024SA327315

PATIENT
  Age: 66 Year
  Weight: 80 kg

DRUGS (145)
  1. FASLODEX [Suspect]
     Active Substance: FULVESTRANT
     Indication: Breast cancer metastatic
     Dosage: 500 MG, QM
  2. FASLODEX [Suspect]
     Active Substance: FULVESTRANT
     Indication: Product used for unknown indication
     Dosage: 500 MG, QM
     Route: 058
  3. FASLODEX [Suspect]
     Active Substance: FULVESTRANT
     Dosage: 500 MG, QM
  4. FASLODEX [Suspect]
     Active Substance: FULVESTRANT
     Dosage: 500 MG, QM
     Route: 058
  5. FASLODEX [Suspect]
     Active Substance: FULVESTRANT
     Dosage: 500 MG, BIW
  6. FASLODEX [Suspect]
     Active Substance: FULVESTRANT
     Dosage: 500 MG, BIW
     Route: 058
  7. FASLODEX [Suspect]
     Active Substance: FULVESTRANT
     Dosage: 500 MG, BIW
  8. FASLODEX [Suspect]
     Active Substance: FULVESTRANT
     Dosage: 500 MG, BIW
     Route: 058
  9. ENHERTU [Suspect]
     Active Substance: FAM-TRASTUZUMAB DERUXTECAN-NXKI
     Indication: Breast cancer metastatic
     Dosage: UNK
  10. ENHERTU [Suspect]
     Active Substance: FAM-TRASTUZUMAB DERUXTECAN-NXKI
     Dosage: UNK
     Route: 058
  11. ENHERTU [Suspect]
     Active Substance: FAM-TRASTUZUMAB DERUXTECAN-NXKI
     Dosage: UNK
  12. ENHERTU [Suspect]
     Active Substance: FAM-TRASTUZUMAB DERUXTECAN-NXKI
     Dosage: UNK
     Route: 058
  13. CAPECITABINE [Suspect]
     Active Substance: CAPECITABINE
     Indication: Breast cancer metastatic
     Dosage: 2000 MG, QD
     Route: 048
  14. CAPECITABINE [Suspect]
     Active Substance: CAPECITABINE
     Dosage: 2000 MG, QD
  15. CAPECITABINE [Suspect]
     Active Substance: CAPECITABINE
     Dosage: 2000 MG, QD
  16. CAPECITABINE [Suspect]
     Active Substance: CAPECITABINE
     Dosage: 2000 MG, QD
     Route: 048
  17. CAPECITABINE [Suspect]
     Active Substance: CAPECITABINE
     Dosage: 3000 MG, QD
  18. CAPECITABINE [Suspect]
     Active Substance: CAPECITABINE
     Dosage: 3000 MG, QD
     Route: 048
  19. CAPECITABINE [Suspect]
     Active Substance: CAPECITABINE
     Dosage: 3000 MG, QD
  20. CAPECITABINE [Suspect]
     Active Substance: CAPECITABINE
     Dosage: 3000 MG, QD
     Route: 048
  21. CAPECITABINE [Suspect]
     Active Substance: CAPECITABINE
     Dosage: 3000 MG, QD
  22. CAPECITABINE [Suspect]
     Active Substance: CAPECITABINE
     Dosage: 3000 MG, QD
  23. CAPECITABINE [Suspect]
     Active Substance: CAPECITABINE
     Dosage: 3000 MG, QD
     Route: 048
  24. CAPECITABINE [Suspect]
     Active Substance: CAPECITABINE
     Dosage: 3000 MG, QD
     Route: 048
  25. CAPECITABINE [Suspect]
     Active Substance: CAPECITABINE
     Dosage: 3500 MG, QD
  26. CAPECITABINE [Suspect]
     Active Substance: CAPECITABINE
     Dosage: 3500 MG, QD
     Route: 048
  27. CAPECITABINE [Suspect]
     Active Substance: CAPECITABINE
     Dosage: 3500 MG, QD
  28. CAPECITABINE [Suspect]
     Active Substance: CAPECITABINE
     Dosage: 3500 MG, QD
     Route: 048
  29. TRASTUZUMAB [Suspect]
     Active Substance: TRASTUZUMAB
     Indication: Breast cancer metastatic
     Dosage: 468 MG, QD
  30. TRASTUZUMAB [Suspect]
     Active Substance: TRASTUZUMAB
     Dosage: 468 MG, QD
     Route: 042
  31. TRASTUZUMAB [Suspect]
     Active Substance: TRASTUZUMAB
     Dosage: 560 MG, Q3W
  32. TRASTUZUMAB [Suspect]
     Active Substance: TRASTUZUMAB
     Dosage: 560 MG, Q3W
     Route: 042
  33. TRASTUZUMAB [Suspect]
     Active Substance: TRASTUZUMAB
     Dosage: 540 MG, Q3W
  34. TRASTUZUMAB [Suspect]
     Active Substance: TRASTUZUMAB
     Dosage: 540 MG, Q3W
     Route: 042
  35. TRASTUZUMAB [Suspect]
     Active Substance: TRASTUZUMAB
     Dosage: 624 MG, QD
  36. TRASTUZUMAB [Suspect]
     Active Substance: TRASTUZUMAB
     Dosage: 624 MG, QD
     Route: 042
  37. TRASTUZUMAB [Suspect]
     Active Substance: TRASTUZUMAB
     Dosage: 462 MG, Q3W
  38. TRASTUZUMAB [Suspect]
     Active Substance: TRASTUZUMAB
     Dosage: 462 MG, Q3W
     Route: 042
  39. TRASTUZUMAB [Suspect]
     Active Substance: TRASTUZUMAB
     Dosage: 432 MG, QD
  40. TRASTUZUMAB [Suspect]
     Active Substance: TRASTUZUMAB
     Dosage: 432 MG, QD
     Route: 042
  41. TRASTUZUMAB [Suspect]
     Active Substance: TRASTUZUMAB
     Dosage: 414 MG, Q3W
  42. TRASTUZUMAB [Suspect]
     Active Substance: TRASTUZUMAB
     Dosage: 414 MG, Q3W
     Route: 042
  43. TRASTUZUMAB [Suspect]
     Active Substance: TRASTUZUMAB
     Dosage: 408 MG, Q3W
  44. TRASTUZUMAB [Suspect]
     Active Substance: TRASTUZUMAB
     Dosage: 408 MG, Q3W
     Route: 042
  45. TRASTUZUMAB [Suspect]
     Active Substance: TRASTUZUMAB
     Dosage: 390 MG; Q17D
  46. TRASTUZUMAB [Suspect]
     Active Substance: TRASTUZUMAB
     Dosage: 390 MG; Q17D
     Route: 042
  47. TUCATINIB [Suspect]
     Active Substance: TUCATINIB
     Indication: Breast cancer metastatic
     Dosage: 300 MG, BID
     Route: 048
  48. TUCATINIB [Suspect]
     Active Substance: TUCATINIB
     Dosage: 300 MG, BID
  49. DOCETAXEL [Suspect]
     Active Substance: DOCETAXEL
     Indication: Breast cancer metastatic
     Dosage: 183 MG, EVERY 17 DAYS
  50. DOCETAXEL [Suspect]
     Active Substance: DOCETAXEL
     Indication: Product used for unknown indication
     Dosage: 183 MG, EVERY 17 DAYS
     Route: 042
  51. DOCETAXEL [Suspect]
     Active Substance: DOCETAXEL
     Dosage: 190 MG, Q3W
  52. DOCETAXEL [Suspect]
     Active Substance: DOCETAXEL
     Dosage: 190 MG, Q3W
     Route: 042
  53. DOCETAXEL [Suspect]
     Active Substance: DOCETAXEL
     Dosage: 180 MG, Q3W
  54. DOCETAXEL [Suspect]
     Active Substance: DOCETAXEL
     Dosage: 180 MG, Q3W
     Route: 042
  55. DOCETAXEL [Suspect]
     Active Substance: DOCETAXEL
     Dosage: 134.25 MG, Q3W
  56. DOCETAXEL [Suspect]
     Active Substance: DOCETAXEL
     Dosage: 134.25 MG, Q3W
     Route: 042
  57. DOCETAXEL [Suspect]
     Active Substance: DOCETAXEL
     Dosage: 175 MG, EVERY 17 DAYS
  58. DOCETAXEL [Suspect]
     Active Substance: DOCETAXEL
     Dosage: 175 MG, EVERY 17 DAYS
     Route: 042
  59. BLEOMYCIN SULFATE [Suspect]
     Active Substance: BLEOMYCIN SULFATE
     Indication: Breast cancer metastatic
     Dosage: 26.850MG QD
  60. BLEOMYCIN SULFATE [Suspect]
     Active Substance: BLEOMYCIN SULFATE
     Dosage: 26.850MG QD
     Route: 042
  61. BLEOMYCIN SULFATE [Suspect]
     Active Substance: BLEOMYCIN SULFATE
     Dosage: 26.850MG QD
  62. BLEOMYCIN SULFATE [Suspect]
     Active Substance: BLEOMYCIN SULFATE
     Dosage: 26.850MG QD
     Route: 042
  63. PERTUZUMAB [Suspect]
     Active Substance: PERTUZUMAB
     Indication: Breast cancer metastatic
     Dosage: 840 MG, QD
  64. PERTUZUMAB [Suspect]
     Active Substance: PERTUZUMAB
     Dosage: 840 MG, QD
     Route: 042
  65. PERTUZUMAB [Suspect]
     Active Substance: PERTUZUMAB
     Dosage: 840 MG, QD
  66. PERTUZUMAB [Suspect]
     Active Substance: PERTUZUMAB
     Dosage: 840 MG, QD
     Route: 042
  67. PERTUZUMAB [Suspect]
     Active Substance: PERTUZUMAB
     Dosage: 840 MG, QD
  68. PERTUZUMAB [Suspect]
     Active Substance: PERTUZUMAB
     Dosage: 840 MG, QD
     Route: 042
  69. DOXORUBICIN [Suspect]
     Active Substance: DOXORUBICIN
     Indication: Breast cancer metastatic
     Dosage: 104.400MG QD
     Route: 042
  70. DOXORUBICIN [Suspect]
     Active Substance: DOXORUBICIN
     Dosage: 104.400MG QD
  71. KADCYLA [Suspect]
     Active Substance: ADO-TRASTUZUMAB EMTANSINE
     Indication: Breast cancer metastatic
     Dosage: 270 MG, Q3W
     Route: 042
  72. KADCYLA [Suspect]
     Active Substance: ADO-TRASTUZUMAB EMTANSINE
     Dosage: 270 MG, Q3W
  73. NOVALGIN (METAMIZOLE SODIUM) [Suspect]
     Active Substance: METAMIZOLE SODIUM
     Dosage: UNK
     Route: 065
  74. NOVALGIN (METAMIZOLE SODIUM) [Suspect]
     Active Substance: METAMIZOLE SODIUM
     Dosage: UNK
     Route: 065
  75. PERJETA [Suspect]
     Active Substance: PERTUZUMAB
     Indication: Breast cancer metastatic
     Dosage: 840 MG, QD
  76. PERJETA [Suspect]
     Active Substance: PERTUZUMAB
     Dosage: 840 MG, QD
     Route: 042
  77. PERJETA [Suspect]
     Active Substance: PERTUZUMAB
     Dosage: 840 MG, QD
  78. PERJETA [Suspect]
     Active Substance: PERTUZUMAB
     Dosage: 840 MG, QD
     Route: 042
  79. PERJETA [Suspect]
     Active Substance: PERTUZUMAB
     Dosage: 840 MG, QD
  80. PERJETA [Suspect]
     Active Substance: PERTUZUMAB
     Dosage: 840 MG, QD
     Route: 042
  81. TYKERB [Suspect]
     Active Substance: LAPATINIB DITOSYLATE
     Indication: Breast cancer metastatic
     Dosage: 1000 MG, QD
  82. TYKERB [Suspect]
     Active Substance: LAPATINIB DITOSYLATE
     Indication: Product used for unknown indication
     Dosage: 1000 MG, QD
     Route: 048
  83. TYKERB [Suspect]
     Active Substance: LAPATINIB DITOSYLATE
     Dosage: 1250 MG, QD
  84. TYKERB [Suspect]
     Active Substance: LAPATINIB DITOSYLATE
     Dosage: 1250 MG, QD
     Route: 048
  85. DENOSUMAB [Suspect]
     Active Substance: DENOSUMAB
     Indication: Breast cancer metastatic
     Dosage: 120 MG, Q4W
     Route: 042
  86. DENOSUMAB [Suspect]
     Active Substance: DENOSUMAB
     Dosage: 120 MG, Q4W
  87. NAVELBINE [Suspect]
     Active Substance: VINORELBINE TARTRATE
     Indication: Breast cancer metastatic
     Dosage: 45 MG, Q3W
     Route: 042
  88. NAVELBINE [Suspect]
     Active Substance: VINORELBINE TARTRATE
     Dosage: 45 MG, Q3W
  89. POLYETHYLENE GLYCOL 3350\POTASSIUM CHLORIDE\SODIUM BICARBONATE\SODIUM [Concomitant]
     Active Substance: POLYETHYLENE GLYCOL 3350\POTASSIUM CHLORIDE\SODIUM BICARBONATE\SODIUM CHLORIDE
     Dosage: UNK
     Route: 065
  90. POLYETHYLENE GLYCOL 3350\POTASSIUM CHLORIDE\SODIUM BICARBONATE\SODIUM [Concomitant]
     Active Substance: POLYETHYLENE GLYCOL 3350\POTASSIUM CHLORIDE\SODIUM BICARBONATE\SODIUM CHLORIDE
     Dosage: UNK
     Route: 065
  91. MORPHINE [Concomitant]
     Active Substance: MORPHINE
     Dosage: UNK
     Route: 065
  92. MORPHINE [Concomitant]
     Active Substance: MORPHINE
     Indication: Dyspnoea
     Dosage: UNK
     Route: 065
  93. SCOTTOPECT [Concomitant]
     Dosage: UNK
     Route: 065
  94. SCOTTOPECT [Concomitant]
     Dosage: UNK
     Route: 065
  95. ALPRAZOLAM [Concomitant]
     Active Substance: ALPRAZOLAM
     Dosage: UNK
     Route: 065
  96. ALPRAZOLAM [Concomitant]
     Active Substance: ALPRAZOLAM
     Dosage: UNK
     Route: 065
  97. VITAMIN C [Concomitant]
     Active Substance: ASCORBIC ACID
     Dosage: UNK
     Route: 065
  98. VITAMIN C [Concomitant]
     Active Substance: ASCORBIC ACID
     Dosage: UNK
     Route: 065
  99. Paspertin [Concomitant]
     Dosage: UNK
     Route: 065
  100. Paspertin [Concomitant]
     Dosage: UNK
     Route: 065
  101. HYDROMORPHONE HYDROCHLORIDE [Concomitant]
     Active Substance: HYDROMORPHONE HYDROCHLORIDE
     Dosage: UNK
     Route: 065
  102. HYDROMORPHONE HYDROCHLORIDE [Concomitant]
     Active Substance: HYDROMORPHONE HYDROCHLORIDE
     Dosage: UNK
     Route: 065
  103. NERIFORTE [Concomitant]
     Dosage: UNK
     Route: 065
  104. NERIFORTE [Concomitant]
     Indication: Skin fissures
     Dosage: UNK
     Route: 065
  105. Cal c vita [Concomitant]
     Dosage: UNK
     Route: 065
  106. Cal c vita [Concomitant]
     Dosage: UNK
     Route: 065
  107. ZOFRAN [Concomitant]
     Active Substance: ONDANSETRON HYDROCHLORIDE
     Dosage: UNK
     Route: 065
  108. ZOFRAN [Concomitant]
     Active Substance: ONDANSETRON HYDROCHLORIDE
     Dosage: UNK
     Route: 065
  109. DROPERIDOL [Concomitant]
     Active Substance: DROPERIDOL
     Dosage: UNK
     Route: 065
  110. DROPERIDOL [Concomitant]
     Active Substance: DROPERIDOL
     Dosage: UNK
     Route: 065
  111. Halset [Concomitant]
     Dosage: UNK
     Route: 065
  112. Halset [Concomitant]
     Dosage: UNK
     Route: 065
  113. EUTHYROX [Concomitant]
     Active Substance: LEVOTHYROXINE SODIUM
     Dosage: UNK
     Route: 065
  114. EUTHYROX [Concomitant]
     Active Substance: LEVOTHYROXINE SODIUM
     Dosage: UNK
     Route: 065
  115. ONDANSETRON [Concomitant]
     Active Substance: ONDANSETRON
     Dosage: UNK
     Route: 065
  116. ONDANSETRON [Concomitant]
     Active Substance: ONDANSETRON
     Dosage: UNK
     Route: 065
  117. Temesta [Concomitant]
     Dosage: UNK
     Route: 065
  118. Temesta [Concomitant]
     Dosage: UNK
     Route: 065
  119. FENTANYL [Concomitant]
     Active Substance: FENTANYL
     Dosage: UNK
     Route: 065
  120. FENTANYL [Concomitant]
     Active Substance: FENTANYL
     Dosage: UNK
     Route: 065
  121. ACETAMINOPHEN [Concomitant]
     Active Substance: ACETAMINOPHEN
     Dosage: UNK
     Route: 065
  122. ACETAMINOPHEN [Concomitant]
     Active Substance: ACETAMINOPHEN
     Dosage: UNK
     Route: 065
  123. BUTYLSCOPOLAMINE BROMIDE [Concomitant]
     Active Substance: BUTYLSCOPOLAMINE BROMIDE
     Dosage: UNK
     Route: 065
  124. BUTYLSCOPOLAMINE BROMIDE [Concomitant]
     Active Substance: BUTYLSCOPOLAMINE BROMIDE
     Dosage: UNK
     Route: 065
  125. Oleovit [Concomitant]
     Dosage: UNK
     Route: 065
  126. Oleovit [Concomitant]
     Dosage: UNK
     Route: 065
  127. Paracodin [Concomitant]
     Dosage: UNK
     Route: 065
  128. Paracodin [Concomitant]
     Dosage: UNK
     Route: 065
  129. PANTOPRAZOLE [Concomitant]
     Active Substance: PANTOPRAZOLE
     Dosage: UNK
     Route: 065
  130. PANTOPRAZOLE [Concomitant]
     Active Substance: PANTOPRAZOLE
     Dosage: UNK
     Route: 065
  131. Leukichtan [Concomitant]
     Dosage: UNK
     Route: 065
  132. Leukichtan [Concomitant]
     Dosage: UNK
     Route: 065
  133. DRONABINOL [Concomitant]
     Active Substance: DRONABINOL
     Dosage: UNK
     Route: 065
  134. DRONABINOL [Concomitant]
     Active Substance: DRONABINOL
     Dosage: UNK
     Route: 065
  135. EDOXABAN TOSYLATE [Concomitant]
     Active Substance: EDOXABAN TOSYLATE
     Dosage: UNK
     Route: 065
  136. EDOXABAN TOSYLATE [Concomitant]
     Active Substance: EDOXABAN TOSYLATE
     Dosage: UNK
     Route: 065
  137. Novalgin [Concomitant]
     Dosage: UNK
  138. XGEVA [Concomitant]
     Active Substance: DENOSUMAB
  139. LORAZEPAM [Concomitant]
     Active Substance: LORAZEPAM
  140. PREGABALIN [Concomitant]
     Active Substance: PREGABALIN
  141. ZIEXTENZO [Concomitant]
     Active Substance: PEGFILGRASTIM-BMEZ
  142. LACTULOSE [Concomitant]
     Active Substance: LACTULOSE
     Dosage: UNK
  143. BETAMETHASONE DIPROPIONATE [Concomitant]
     Active Substance: BETAMETHASONE DIPROPIONATE
     Dosage: UNK
     Route: 061
  144. BETAMETHASONE DIPROPIONATE [Concomitant]
     Active Substance: BETAMETHASONE DIPROPIONATE
     Dosage: UNK
  145. PONVERIDOL [Concomitant]

REACTIONS (22)
  - Pseudomonal sepsis [Recovered/Resolved]
  - Sepsis [Recovered/Resolved]
  - Streptococcal sepsis [Recovered/Resolved]
  - Candida infection [Not Recovered/Not Resolved]
  - Metastases to central nervous system [Not Recovered/Not Resolved]
  - Vascular device infection [Recovered/Resolved]
  - Brain oedema [Not Recovered/Not Resolved]
  - Metastases to lymph nodes [Not Recovered/Not Resolved]
  - Candida infection [Not Recovered/Not Resolved]
  - Back pain [Recovered/Resolved]
  - C-reactive protein increased [Not Recovered/Not Resolved]
  - Vomiting [Recovered/Resolved]
  - Nausea [Recovered/Resolved]
  - Fatigue [Not Recovered/Not Resolved]
  - Skin fissures [Recovered/Resolved]
  - Varicose vein [Not Recovered/Not Resolved]
  - Nail bed inflammation [Unknown]
  - Eczema [Not Recovered/Not Resolved]
  - Paronychia [Recovered/Resolved]
  - Pleural effusion [Recovered/Resolved]
  - Restlessness [Unknown]
  - Nasal mucosal disorder [Recovered/Resolved]
